FAERS Safety Report 13428781 (Version 2)
Quarter: 2017Q2

REPORT INFORMATION
  Report Type: Spontaneous
  Country: JP (occurrence: JP)
  Receive Date: 20170411
  Receipt Date: 20170428
  Transmission Date: 20170830
  Serious: Yes (Hospitalization, Other)
  Sender: FDA-Public Use
  Company Number: JP-PFIZER INC-2017154567

PATIENT
  Age: 82 Year
  Sex: Male

DRUGS (2)
  1. TRAMAL [Suspect]
     Active Substance: TRAMADOL
  2. CELECOX [Suspect]
     Active Substance: CELECOXIB

REACTIONS (4)
  - Neoplasm progression [Unknown]
  - Pyrexia [Unknown]
  - Back pain [Unknown]
  - Compression fracture [Unknown]
